FAERS Safety Report 7978680-3 (Version None)
Quarter: 2011Q4

REPORT INFORMATION
  Report Type: 
  Country: None (occurrence: None)
  Receive Date: 20111129
  Receipt Date: 20110810
  Transmission Date: 20120403
  Serious: No
  Sender: FDA-Public Use
  Company Number: PHEH2011US01369

PATIENT
  Sex: Female

DRUGS (1)
  1. AFINITOR [Suspect]
     Indication: RENAL CANCER
     Dosage: 10 MG, DAILY, ORAL
     Route: 048
     Dates: start: 20110701, end: 20110714

REACTIONS (5)
  - DIZZINESS [None]
  - OEDEMA [None]
  - NAUSEA [None]
  - BLOOD CALCIUM INCREASED [None]
  - FATIGUE [None]
